FAERS Safety Report 19212327 (Version 1)
Quarter: 2021Q2

REPORT INFORMATION
  Report Type: Spontaneous
  Country: FR (occurrence: FR)
  Receive Date: 20210504
  Receipt Date: 20210504
  Transmission Date: 20210717
  Serious: Yes (Death, Other)
  Sender: FDA-Public Use
  Company Number: FR-AUROBINDO-AUR-APL-2021-018202

PATIENT
  Age: 77 Year
  Sex: Female
  Weight: 68 kg

DRUGS (5)
  1. IDEOS [Suspect]
     Active Substance: CALCIUM CARBONATE\CHOLECALCIFEROL
     Indication: OSTEOPOROSIS
     Dosage: 1 DOSAGE FORM, ONCE A DAY
     Route: 048
  2. BISOPROLOL [Suspect]
     Active Substance: BISOPROLOL
     Indication: HYPERTENSION
     Dosage: 1.25 MILLIGRAM, ONCE A DAY
     Route: 048
  3. TRAMADOL. [Suspect]
     Active Substance: TRAMADOL
     Indication: PRODUCT USED FOR UNKNOWN INDICATION
     Dosage: UNK
     Route: 065
  4. HYDROCORTISONE. [Suspect]
     Active Substance: HYDROCORTISONE
     Indication: HYPOPITUITARISM
     Dosage: 20 MILLIGRAM, ONCE A DAY
     Route: 048
  5. LEVOTHYROX [Suspect]
     Active Substance: LEVOTHYROXINE
     Indication: HYPOTHYROIDISM
     Dosage: 1 DOSAGE FORM, ONCE A DAY
     Route: 048

REACTIONS (3)
  - Pneumonia aspiration [Fatal]
  - Gastrointestinal disorder [Fatal]
  - Sudden death [Fatal]

NARRATIVE: CASE EVENT DATE: 20200830
